FAERS Safety Report 23704034 (Version 24)
Quarter: 2025Q4

REPORT INFORMATION
  Report Type: Report from Study
  Country: EU (occurrence: EU)
  Receive Date: 20240403
  Receipt Date: 20251019
  Transmission Date: 20260117
  Serious: Yes (Other)
  Sender: JOHNSON AND JOHNSON
  Company Number: EU-JNJFOC-20240339765

PATIENT
  Age: 43 Year
  Sex: Male

DRUGS (1)
  1. SPRAVATO [Suspect]
     Active Substance: ESKETAMINE
     Indication: Depression
     Dosage: 56 MG, 79 TOTAL DOSES (04-MAR-2024, 08-MAR-2024, 12-MAR-2024, 14-MAR-2024, 19-MAR-2024, 21-MAR-2024,
     Route: 045
     Dates: start: 20240304, end: 20250828

REACTIONS (13)
  - Hallucination [Recovered/Resolved]
  - Haematemesis [Recovered/Resolved]
  - Sedation [Recovered/Resolved]
  - Blood pressure diastolic increased [Recovered/Resolved]
  - Blood pressure increased [Recovered/Resolved]
  - Vertigo [Recovered/Resolved]
  - Anxiety [Recovered/Resolved]
  - Ear discomfort [Recovered/Resolved]
  - Ocular discomfort [Recovered/Resolved]
  - Dissociation [Recovered/Resolved]
  - Blood pressure systolic increased [Recovered/Resolved]
  - Somnolence [Recovered/Resolved]
  - Depression [Recovered/Resolved]

NARRATIVE: CASE EVENT DATE: 20240304
